FAERS Safety Report 6071442-6 (Version None)
Quarter: 2009Q1

REPORT INFORMATION
  Report Type: 
  Country: None (occurrence: None)
  Receive Date: 20090204
  Receipt Date: 20090129
  Transmission Date: 20090719
  Serious: Yes (Death)
  Sender: FDA-Public Use
  Company Number: OSCN-PR-0901S-0044

PATIENT
  Sex: Male

DRUGS (3)
  1. OMNISCAN [Suspect]
     Indication: HYPOTHALAMO-PITUITARY DISORDER
     Dosage: SINGLE DOSE
     Dates: start: 20051206, end: 20051206
  2. OMNISCAN [Suspect]
     Indication: HYPOTHALAMO-PITUITARY DISORDER
     Dosage: SINGLE DOSE
     Dates: start: 20060516, end: 20060516
  3. GADOLINIUM [Concomitant]

REACTIONS (1)
  - NEPHROGENIC SYSTEMIC FIBROSIS [None]
